FAERS Safety Report 21241475 (Version 3)
Quarter: 2022Q4

REPORT INFORMATION
  Report Type: Spontaneous
  Country: CH (occurrence: None)
  Receive Date: 20220823
  Receipt Date: 20221004
  Transmission Date: 20230112
  Serious: Yes (Other)
  Sender: FDA-Public Use
  Company Number: CH-ROCHE-3164925

PATIENT
  Sex: Male

DRUGS (12)
  1. RITUXIMAB [Suspect]
     Active Substance: RITUXIMAB
     Indication: Diffuse large B-cell lymphoma
     Dosage: 1ST LINE SYSTEMIC TREATMENT, R-CHOP
     Route: 065
     Dates: start: 20210721, end: 20211108
  2. DOXORUBICIN HYDROCHLORIDE [Suspect]
     Active Substance: DOXORUBICIN HYDROCHLORIDE
     Indication: Diffuse large B-cell lymphoma
     Dosage: 1ST LINE SYSTEMIC TREATMENT, R-CHOP
     Route: 065
     Dates: start: 20210721, end: 20211108
  3. VINCRISTINE [Suspect]
     Active Substance: VINCRISTINE
     Indication: Diffuse large B-cell lymphoma
     Dosage: 1ST LINE SYSTEMIC TREATMENT, R-CHOP
     Route: 065
     Dates: start: 20210721, end: 20211108
  4. PREDNISONE [Suspect]
     Active Substance: PREDNISONE
     Indication: Diffuse large B-cell lymphoma
     Dosage: 1ST LINE SYSTEMIC TREATMENT, R-CHOP
     Route: 065
     Dates: start: 20210721, end: 20211108
  5. GEMCITABINE [Suspect]
     Active Substance: GEMCITABINE
     Indication: Diffuse large B-cell lymphoma
     Dosage: 2ND LINE SYSTEMIC TREATMENT, IGEV-B
     Route: 065
     Dates: start: 20220306, end: 20220329
  6. BORTEZOMIB [Suspect]
     Active Substance: BORTEZOMIB
     Indication: Diffuse large B-cell lymphoma
     Dosage: 2ND LINE SYSTEMIC TREATMENT, IGEV-B
     Route: 065
     Dates: start: 20220306, end: 20220329
  7. IBRUTINIB [Suspect]
     Active Substance: IBRUTINIB
     Indication: Diffuse large B-cell lymphoma
     Dosage: 4TH LINE SYSTEMIC TREATMENT, IBRUTINIB MONOTHERAPY
     Route: 065
     Dates: start: 20220624, end: 20220725
  8. BEAM [Suspect]
     Active Substance: SODIUM FLUORIDE
     Indication: Diffuse large B-cell lymphoma
     Dosage: 3RD LINE SYSTEMIC TREATMENT, BEAM+ASCT
     Route: 065
     Dates: start: 20220429, end: 20220504
  9. CYCLOPHOSPHAMIDE [Suspect]
     Active Substance: CYCLOPHOSPHAMIDE
     Indication: Diffuse large B-cell lymphoma
     Dosage: 1ST LINE SYSTEMIC TREATMENT, R-CHOP
     Route: 065
     Dates: start: 20210721, end: 20211108
  10. IFOSFAMIDE [Suspect]
     Active Substance: IFOSFAMIDE
  11. PREDNISONE [Suspect]
     Active Substance: PREDNISONE
  12. VINORELBINE [Suspect]
     Active Substance: VINORELBINE TARTRATE

REACTIONS (1)
  - Disease progression [Unknown]
